FAERS Safety Report 7786820-4 (Version None)
Quarter: 2011Q3

REPORT INFORMATION
  Report Type: 
  Country: None (occurrence: None)
  Receive Date: 20110929
  Receipt Date: 20110919
  Transmission Date: 20111222
  Serious: Yes (Hospitalization)
  Sender: FDA-Public Use
  Company Number: US-MUTUAL PHARMACEUTICAL COMPANY, INC.-QLQN20110016

PATIENT
  Sex: Male
  Weight: 74.91 kg

DRUGS (1)
  1. QUALAQUIN [Suspect]
     Indication: MUSCLE SPASMS
     Route: 048
     Dates: start: 20110701, end: 20110801

REACTIONS (9)
  - ACUTE HEPATIC FAILURE [None]
  - LOSS OF CONSCIOUSNESS [None]
  - URINE COLOUR ABNORMAL [None]
  - OFF LABEL USE [None]
  - RED BLOOD CELL COUNT DECREASED [None]
  - DIZZINESS [None]
  - VOMITING [None]
  - RENAL FAILURE ACUTE [None]
  - DIARRHOEA [None]
